FAERS Safety Report 21601558 (Version 1)
Quarter: 2022Q4

REPORT INFORMATION
  Report Type: Spontaneous
  Country: US (occurrence: US)
  Receive Date: 20221116
  Receipt Date: 20221116
  Transmission Date: 20230112
  Serious: Yes (Hospitalization)
  Sender: FDA-Public Use
  Company Number: US-CHIESI-2022CHF05901

PATIENT
  Sex: Female

DRUGS (4)
  1. BETHKIS [Suspect]
     Active Substance: TOBRAMYCIN
     Indication: Cystic fibrosis lung
     Dosage: 300 MILLIGRAM, Q12H
     Route: 055
     Dates: start: 20191002
  2. PULMOZYME [Concomitant]
     Active Substance: DORNASE ALFA
     Indication: Illness
     Dosage: UNK, QD
  3. PULMOZYME [Concomitant]
     Active Substance: DORNASE ALFA
     Indication: Cough
  4. CAYSTON [Concomitant]
     Active Substance: AZTREONAM
     Indication: Product used for unknown indication
     Dosage: UNK UNK, TID

REACTIONS (1)
  - Ill-defined disorder [Unknown]
